FAERS Safety Report 11458683 (Version 1)
Quarter: 2015Q3

REPORT INFORMATION
  Report Type: Spontaneous
  Country: US (occurrence: US)
  Receive Date: 20150904
  Receipt Date: 20150904
  Transmission Date: 20151125
  Serious: Yes (Other)
  Sender: FDA-Public Use
  Company Number: US-MYLANLABS-2015M1029658

PATIENT

DRUGS (3)
  1. ERLOTINIB [Suspect]
     Active Substance: ERLOTINIB
     Indication: LUNG ADENOCARCINOMA
     Route: 065
  2. CRIZOTINIB [Interacting]
     Active Substance: CRIZOTINIB
     Indication: LUNG ADENOCARCINOMA
     Route: 065
  3. CRIZOTINIB [Interacting]
     Active Substance: CRIZOTINIB
     Indication: OFF LABEL USE

REACTIONS (5)
  - Oedema peripheral [Not Recovered/Not Resolved]
  - Transaminases increased [Recovered/Resolved]
  - Drug interaction [Unknown]
  - Drug resistance [Unknown]
  - Organising pneumonia [Unknown]
